FAERS Safety Report 5907361-2 (Version None)
Quarter: 2008Q4

REPORT INFORMATION
  Report Type: 
  Country: None (occurrence: None)
  Receive Date: 20081003
  Receipt Date: 20080923
  Transmission Date: 20090506
  Serious: Yes (Hospitalization, Other)
  Sender: FDA-Public Use
  Company Number: MX-ELI_LILLY_AND_COMPANY-MX200809005277

PATIENT
  Age: 36 Year
  Sex: Male

DRUGS (1)
  1. CIALIS [Suspect]
     Dosage: UNK, UNKNOWN
     Route: 065

REACTIONS (1)
  - CEREBRAL ISCHAEMIA [None]
